FAERS Safety Report 9361733 (Version 2)
Quarter: 2013Q4

REPORT INFORMATION
  Report Type: Spontaneous
  Country: US (occurrence: US)
  Receive Date: 20130621
  Receipt Date: 20131101
  Transmission Date: 20140711
  Serious: Yes (Hospitalization, Other)
  Sender: FDA-Public Use
  Company Number: US-AMGEN-USASP2013043447

PATIENT
  Age: 72 Year
  Sex: Female

DRUGS (9)
  1. ENBREL [Suspect]
     Indication: RHEUMATOID ARTHRITIS
     Dosage: UNK, QWK
     Route: 065
  2. HUMIRA [Suspect]
     Indication: RHEUMATOID ARTHRITIS
     Dosage: 40 MG, Q2WK
     Route: 065
  3. ARAVA [Concomitant]
     Indication: RHEUMATOID ARTHRITIS
     Dosage: 20 MG, 1 TABLET 1 IN 1 DAY
  4. DIOVAN [Concomitant]
     Indication: HYPERTENSION
     Dosage: 160 MG, 1 TABLET 1 IN 1 DAY
  5. CALCIUM [Concomitant]
     Indication: SUPPLEMENTATION THERAPY
     Dosage: UNK, 1 TABLET 1 IN 1 DAY
  6. VIGRAN [Concomitant]
     Indication: SUPPLEMENTATION THERAPY
     Dosage: UNK, 1 TABLET 1 IN 1 DAY
  7. OMEGA 3                            /01334101/ [Concomitant]
     Indication: SUPPLEMENTATION THERAPY
     Dosage: UNK, 1 TABLET 1 IN 1 DAY
  8. PREDNISONE [Concomitant]
     Indication: RHEUMATOID ARTHRITIS
     Dosage: 5MG, 2 TABLETS IN AM, AND 1 IN PM
  9. PREDNISONE [Concomitant]
     Dosage: 5 MG, TWO TABLETS TWICE A DAY

REACTIONS (7)
  - Osteoarthritis [Unknown]
  - Arthralgia [Not Recovered/Not Resolved]
  - Pain [Unknown]
  - Musculoskeletal stiffness [Unknown]
  - Injection site erythema [Recovered/Resolved]
  - Injection site bruising [Unknown]
  - Drug ineffective [Unknown]
